FAERS Safety Report 18985639 (Version 1)
Quarter: 2021Q1

REPORT INFORMATION
  Report Type: Spontaneous
  Country: ES (occurrence: ES)
  Receive Date: 20210309
  Receipt Date: 20210309
  Transmission Date: 20210420
  Serious: Yes (Other)
  Sender: FDA-Public Use
  Company Number: ES-PFIZER INC-2021215789

PATIENT
  Age: 86 Year
  Sex: Male

DRUGS (1)
  1. LINCOCIN [Suspect]
     Active Substance: LINCOMYCIN
     Indication: INFECTION
     Dosage: UNK

REACTIONS (3)
  - Inflammation [Unknown]
  - Swelling [Unknown]
  - Anaphylactic reaction [Unknown]
